FAERS Safety Report 7588916-9 (Version None)
Quarter: 2011Q3

REPORT INFORMATION
  Report Type: 
  Country: None (occurrence: None)
  Receive Date: 20110705
  Receipt Date: 20110627
  Transmission Date: 20111222
  Serious: Yes (Hospitalization)
  Sender: FDA-Public Use
  Company Number: DE-JNJFOC-20110611150

PATIENT
  Age: 91 Year
  Sex: Female

DRUGS (9)
  1. LYRICA [Suspect]
     Route: 048
     Dates: end: 20110531
  2. ALLOPURINOL [Concomitant]
     Route: 048
  3. CARBIMAZOL [Concomitant]
     Route: 048
  4. HALDOL [Suspect]
     Indication: PRODUCT USED FOR UNKNOWN INDICATION
     Route: 048
     Dates: start: 20110518
  5. LYRICA [Suspect]
     Indication: PRODUCT USED FOR UNKNOWN INDICATION
     Route: 048
  6. BISOPROLOL FUMARATE [Concomitant]
     Route: 048
  7. DIPIPERON [Suspect]
     Indication: PRODUCT USED FOR UNKNOWN INDICATION
     Route: 048
     Dates: start: 20110518
  8. TORSEMIDE [Concomitant]
     Route: 048
  9. LYRICA [Suspect]
     Route: 048
     Dates: start: 20110520

REACTIONS (1)
  - FACE OEDEMA [None]
